FAERS Safety Report 25484874 (Version 1)
Quarter: 2025Q2

REPORT INFORMATION
  Report Type: Report from Study
  Country: US (occurrence: US)
  Receive Date: 20250626
  Receipt Date: 20250626
  Transmission Date: 20250717
  Serious: Yes (Other)
  Sender: NOVARTIS
  Company Number: US-002147023-NVSC2025US061747

PATIENT
  Sex: Male

DRUGS (1)
  1. TAFINLAR [Suspect]
     Active Substance: DABRAFENIB MESYLATE
     Indication: Renal disorder
     Dosage: 1200 MG, QW (150MG BY MOUTH DAILY ON MONDAY, TUESDAY, THURSDAY, FRIDAY, AND SATURDAY, AND 225MG BY M
     Route: 048
     Dates: start: 2016

REACTIONS (4)
  - Neuropathy peripheral [Unknown]
  - Palmar-plantar erythrodysaesthesia syndrome [Unknown]
  - Blister [Unknown]
  - Hyperkeratosis [Unknown]
